FAERS Safety Report 18769412 (Version 2)
Quarter: 2021Q1

REPORT INFORMATION
  Report Type: Spontaneous
  Country: PR (occurrence: PR)
  Receive Date: 20210121
  Receipt Date: 20210205
  Transmission Date: 20210419
  Serious: Yes (Death, Life-Threatening, Hospitalization, Other)
  Sender: FDA-Public Use
  Company Number: US-009507513-2101USA009315

PATIENT
  Sex: Female

DRUGS (1)
  1. KEYTRUDA [Suspect]
     Active Substance: PEMBROLIZUMAB
     Dosage: UNK

REACTIONS (5)
  - Ventricular arrhythmia [Unknown]
  - Cardiac disorder [Fatal]
  - Vomiting [Unknown]
  - Ejection fraction abnormal [Unknown]
  - Nausea [Unknown]

NARRATIVE: CASE EVENT DATE: 202101
